FAERS Safety Report 25305239 (Version 1)
Quarter: 2025Q2

REPORT INFORMATION
  Report Type: Spontaneous
  Country: US (occurrence: None)
  Receive Date: 20250513
  Receipt Date: 20250513
  Transmission Date: 20250716
  Serious: Yes (Hospitalization)
  Sender: FDA-CTU
  Company Number: None

PATIENT
  Age: 47 Year
  Sex: Female
  Weight: 73 kg

DRUGS (1)
  1. SUCCINYLCHOLINE CHLORIDE [Suspect]
     Active Substance: SUCCINYLCHOLINE CHLORIDE
     Indication: Surgery
     Route: 042
     Dates: start: 20240517, end: 20240517

REACTIONS (19)
  - Abdominal pain [None]
  - Back pain [None]
  - Abdominal distension [None]
  - Post procedural complication [None]
  - Myalgia [None]
  - Troponin increased [None]
  - Myalgia [None]
  - Adverse drug reaction [None]
  - Nausea [None]
  - Condition aggravated [None]
  - Ill-defined disorder [None]
  - Myocardial injury [None]
  - Gastrointestinal disorder [None]
  - Induration [None]
  - Renal impairment [None]
  - Hypotension [None]
  - Generalised oedema [None]
  - Thrombocytopenia [None]
  - Weight increased [None]

NARRATIVE: CASE EVENT DATE: 20240518
